FAERS Safety Report 7365005-X (Version None)
Quarter: 2011Q1

REPORT INFORMATION
  Report Type: 
  Country: None (occurrence: None)
  Receive Date: 20110321
  Receipt Date: 20110317
  Transmission Date: 20110831
  Serious: Yes (Death, Hospitalization)
  Sender: FDA-Public Use
  Company Number: JP-SANOFI-AVENTIS-2011SA016237

PATIENT
  Age: 90 Year
  Sex: Female
  Weight: 41.6 kg

DRUGS (10)
  1. FRANDOL [Concomitant]
  2. PLAVIX [Suspect]
     Route: 048
     Dates: start: 20110128, end: 20110221
  3. PLETAL [Concomitant]
  4. OMEPRAL [Concomitant]
  5. PLAVIX [Suspect]
     Indication: THROMBOSIS PROPHYLAXIS
     Route: 048
     Dates: start: 20101220, end: 20101231
  6. ASPIRIN [Suspect]
  7. LENDORMIN [Concomitant]
  8. ALFAROL [Concomitant]
  9. CELECTOL [Concomitant]
  10. CRESTOR [Concomitant]

REACTIONS (2)
  - INTERSTITIAL LUNG DISEASE [None]
  - POST PROCEDURAL HAEMORRHAGE [None]
